FAERS Safety Report 4427399-4 (Version None)
Quarter: 2004Q3

REPORT INFORMATION
  Report Type: 
  Country: None (occurrence: None)
  Receive Date: 20040812
  Receipt Date: 20040728
  Transmission Date: 20050211
  Serious: Yes (Other)
  Sender: FDA-Public Use
  Company Number: JP-SHR-03-011730

PATIENT
  Age: 25 Year
  Sex: Female

DRUGS (8)
  1. BETAFERON (INTERFERON BETA - 1B) INJECTION [Suspect]
     Indication: MULTIPLE SCLEROSIS RELAPSE
     Dosage: 4 MIU, EVERY 2D, SUBCUTANEOUS
     Route: 058
     Dates: start: 20020724, end: 20020731
  2. BETAFERON (INTERFERON BETA - 1B) INJECTION [Suspect]
     Indication: MULTIPLE SCLEROSIS RELAPSE
     Dosage: 4 MIU, EVERY 2D, SUBCUTANEOUS
     Route: 058
     Dates: start: 20020801, end: 20021107
  3. SOLU-MEDROL [Concomitant]
  4. METHYCOBAL (MECOBALAMIN) [Concomitant]
  5. MYONAL (EPERISONE HYDROCHLORIDE) [Concomitant]
  6. SELBEX (TEPRENONE) [Concomitant]
  7. ZOLPIDEM TARTRATE [Concomitant]
  8. SILECE (FLUNITRAZEPAM) [Concomitant]

REACTIONS (4)
  - MENTAL IMPAIRMENT [None]
  - MULTIPLE SCLEROSIS RELAPSE [None]
  - NERVOUS SYSTEM DISORDER [None]
  - PARAPLEGIA [None]
